FAERS Safety Report 10022821 (Version 1)
Quarter: 2014Q1

REPORT INFORMATION
  Report Type: Spontaneous
  Country: GB (occurrence: GB)
  Receive Date: 20140319
  Receipt Date: 20140319
  Transmission Date: 20141002
  Serious: Yes (Other)
  Sender: FDA-Public Use
  Company Number: PHHY2014GB029776

PATIENT
  Age: 36 Year
  Sex: Male
  Weight: 66.22 kg

DRUGS (1)
  1. NYSTATIN [Suspect]
     Indication: ORAL CANDIDIASIS
     Dosage: 1 ML, QID
     Route: 048
     Dates: start: 20140223, end: 20140303

REACTIONS (2)
  - Vomiting [Recovering/Resolving]
  - Diarrhoea [Recovering/Resolving]
